FAERS Safety Report 6300472-1 (Version None)
Quarter: 2009Q3

REPORT INFORMATION
  Report Type: 
  Country: None (occurrence: None)
  Receive Date: 20090806
  Receipt Date: 20090205
  Transmission Date: 20100115
  Serious: No
  Sender: FDA-Public Use
  Company Number: US-ABBOTT-08P-163-0485781-00

PATIENT
  Age: 42 Year
  Sex: Male

DRUGS (2)
  1. DEPAKOTE ER [Suspect]
     Indication: EPILEPSY
  2. DEPAKOTE [Suspect]
     Indication: EPILEPSY

REACTIONS (6)
  - AMMONIA INCREASED [None]
  - BLOOD TRIGLYCERIDES INCREASED [None]
  - CARNITINE DECREASED [None]
  - HAEMATOCRIT DECREASED [None]
  - HAEMOGLOBIN DECREASED [None]
  - HIGH DENSITY LIPOPROTEIN DECREASED [None]
